FAERS Safety Report 20127729 (Version 1)
Quarter: 2021Q4

REPORT INFORMATION
  Report Type: Spontaneous
  Country: FR (occurrence: FR)
  Receive Date: 20211129
  Receipt Date: 20211129
  Transmission Date: 20220303
  Serious: Yes (Hospitalization)
  Sender: FDA-Public Use
  Company Number: FR-BAUSCH-BL-2021-039102

PATIENT
  Age: 55 Year
  Sex: Female

DRUGS (10)
  1. RIFAXIMIN [Suspect]
     Active Substance: RIFAXIMIN
     Indication: Hepatic encephalopathy
     Route: 048
     Dates: start: 20190201, end: 20190219
  2. SPIRONOLACTONE [Suspect]
     Active Substance: SPIRONOLACTONE
     Indication: Product used for unknown indication
     Route: 048
     Dates: start: 20190206, end: 20190219
  3. FUROSEMIDE [Suspect]
     Active Substance: FUROSEMIDE
     Indication: Product used for unknown indication
     Route: 065
     Dates: start: 20190130, end: 20190219
  4. CEFOTAXIME SODIUM [Suspect]
     Active Substance: CEFOTAXIME SODIUM
     Indication: Infection
     Dosage: UNKNOWN
     Route: 041
     Dates: start: 20190125, end: 20190202
  5. IOMERON [Suspect]
     Active Substance: IOMEPROL
     Indication: Computerised tomogram
     Route: 041
     Dates: start: 20190202, end: 20190202
  6. TAZOBACTAM [Suspect]
     Active Substance: TAZOBACTAM
     Indication: Infection
     Route: 041
     Dates: start: 20190204, end: 20190206
  7. IPRATROPIUM BROMIDE [Suspect]
     Active Substance: IPRATROPIUM BROMIDE
     Indication: Product used for unknown indication
     Route: 002
     Dates: start: 20190204, end: 20190219
  8. ALBUTEROL [Suspect]
     Active Substance: ALBUTEROL
     Indication: Product used for unknown indication
     Route: 002
     Dates: start: 20190204, end: 20190219
  9. LOVENOX [Suspect]
     Active Substance: ENOXAPARIN SODIUM
     Indication: Thrombosis prophylaxis
     Route: 058
     Dates: start: 20190131, end: 20190219
  10. PIPERACILLIN [Suspect]
     Active Substance: PIPERACILLIN
     Indication: Infection
     Route: 011
     Dates: start: 20190204, end: 20190206

REACTIONS (3)
  - Acute generalised exanthematous pustulosis [Recovering/Resolving]
  - Neutrophil count increased [Unknown]
  - Pyrexia [Unknown]

NARRATIVE: CASE EVENT DATE: 20190101
